FAERS Safety Report 25221333 (Version 1)
Quarter: 2025Q2

REPORT INFORMATION
  Report Type: Spontaneous
  Country: US (occurrence: US)
  Receive Date: 20250421
  Receipt Date: 20250421
  Transmission Date: 20250717
  Serious: No
  Sender: UCB
  Company Number: US-UCBSA-2024046821

PATIENT
  Age: 42 Year
  Sex: Male

DRUGS (13)
  1. NEUPRO [Suspect]
     Active Substance: ROTIGOTINE
     Indication: Parkinson^s disease
     Dosage: 2 MILLIGRAM, ONCE DAILY (QD)
     Route: 062
  2. NEUPRO [Suspect]
     Active Substance: ROTIGOTINE
     Indication: Osmotic demyelination syndrome
  3. NEUPRO [Suspect]
     Active Substance: ROTIGOTINE
     Indication: Off label use
  4. DESMOPRESSIN [Concomitant]
     Active Substance: DESMOPRESSIN
     Indication: Von Willebrand^s disease
  5. CARBIDOPA AND LEVODOPA [Concomitant]
     Active Substance: CARBIDOPA\LEVODOPA
     Indication: Osmotic demyelination syndrome
     Dosage: 1 DOSAGE FORM, 3X/DAY (TID) (25/100 MG)
  6. CARBIDOPA AND LEVODOPA [Concomitant]
     Active Substance: CARBIDOPA\LEVODOPA
     Dosage: 1.5 DOSAGE FORM, 3X/DAY (TID)
  7. AMANTADINE [Concomitant]
     Active Substance: AMANTADINE
     Indication: Osmotic demyelination syndrome
     Dosage: 100 MILLIGRAM, 2X/DAY (BID)
  8. TRIHEXYPHENIDYL [Concomitant]
     Active Substance: TRIHEXYPHENIDYL
     Indication: Osmotic demyelination syndrome
     Dosage: 2 MILLIGRAM, 3X/DAY (TID)
  9. PRAMIPEXOLE [Concomitant]
     Active Substance: PRAMIPEXOLE
     Indication: Osmotic demyelination syndrome
     Dosage: 0.5 MILLIGRAM, 3X/DAY (TID)
     Dates: start: 202112
  10. PRAMIPEXOLE [Concomitant]
     Active Substance: PRAMIPEXOLE
     Dosage: 1 MILLIGRAM, 3X/DAY (TID)
  11. LEVODOPA [Concomitant]
     Active Substance: LEVODOPA
     Indication: Osmotic demyelination syndrome
  12. VALPROIC ACID [Concomitant]
     Active Substance: VALPROIC ACID
     Indication: Affective disorder
  13. LAMOTRIGINE [Concomitant]
     Active Substance: LAMOTRIGINE
     Indication: Affective disorder

REACTIONS (2)
  - Off label use [Unknown]
  - Drug ineffective for unapproved indication [Unknown]
